FAERS Safety Report 7176686-8 (Version None)
Quarter: 2010Q4

REPORT INFORMATION
  Report Type: 
  Country: None (occurrence: None)
  Receive Date: 20101220
  Receipt Date: 20101215
  Transmission Date: 20110411
  Serious: Yes (Death, Life-Threatening, Hospitalization, Other)
  Sender: FDA-Public Use
  Company Number: DE-ROXANE LABORATORIES, INC.-2010-RO-01698RO

PATIENT
  Age: 74 Year
  Sex: Male

DRUGS (3)
  1. MERCAPTOPURINE [Suspect]
     Indication: COLITIS ULCERATIVE
     Dates: start: 20080201
  2. AZATHIOPRINE [Suspect]
     Indication: COLITIS ULCERATIVE
  3. TACROLIMUS [Suspect]
     Indication: COLITIS ULCERATIVE

REACTIONS (8)
  - ABDOMINAL DISCOMFORT [None]
  - CARDIOMYOPATHY [None]
  - HEPATIC FAILURE [None]
  - ILEUS PARALYTIC [None]
  - NAUSEA [None]
  - PNEUMOCYSTIS JIROVECI PNEUMONIA [None]
  - RENAL FAILURE [None]
  - SEPSIS [None]
